FAERS Safety Report 8143544-1 (Version None)
Quarter: 2012Q1

REPORT INFORMATION
  Report Type: 
  Country: None (occurrence: None)
  Receive Date: 20120217
  Receipt Date: 20120215
  Transmission Date: 20120608
  Serious: Yes (Death, Life-Threatening, Hospitalization, Other)
  Sender: FDA-Public Use
  Company Number: IN-SANOFI-AVENTIS-2011SA061566

PATIENT
  Age: 30 Year
  Sex: Male
  Weight: 42.4 kg

DRUGS (5)
  1. BLINDED THERAPY [Suspect]
     Route: 065
     Dates: start: 20110830
  2. BLINDED THERAPY [Suspect]
     Indication: PULMONARY TUBERCULOSIS
     Route: 065
     Dates: start: 20110830
  3. BLINDED THERAPY [Suspect]
     Route: 065
     Dates: start: 20110830
  4. RIFAMPICIN [Suspect]
     Indication: PULMONARY TUBERCULOSIS
     Route: 065
     Dates: start: 20110830
  5. PYRAZINAMIDE [Suspect]
     Indication: PULMONARY TUBERCULOSIS
     Route: 065
     Dates: start: 20110830

REACTIONS (12)
  - THINKING ABNORMAL [None]
  - SPEECH DISORDER [None]
  - IRRITABILITY [None]
  - LOSS OF CONSCIOUSNESS [None]
  - ABNORMAL BEHAVIOUR [None]
  - ASPHYXIA [None]
  - PYREXIA [None]
  - PNEUMONIA ASPIRATION [None]
  - ALTERED STATE OF CONSCIOUSNESS [None]
  - TUBERCULOSIS OF CENTRAL NERVOUS SYSTEM [None]
  - CONVULSION [None]
  - COMA [None]
